FAERS Safety Report 24401272 (Version 3)
Quarter: 2024Q4

REPORT INFORMATION
  Report Type: Spontaneous
  Country: US (occurrence: US)
  Receive Date: 20241007
  Receipt Date: 20241122
  Transmission Date: 20250114
  Serious: No
  Sender: TAKEDA
  Company Number: US-TAKEDA-2024TUS098262

PATIENT
  Sex: Female
  Weight: 11 kg

DRUGS (2)
  1. EOHILIA [Suspect]
     Active Substance: BUDESONIDE
     Indication: Eosinophilic oesophagitis
     Dosage: 0.5 MILLIGRAM, BID
     Dates: start: 20241003
  2. EOHILIA [Suspect]
     Active Substance: BUDESONIDE
     Dosage: UNK, BID
     Dates: start: 20240924

REACTIONS (3)
  - No adverse event [Unknown]
  - Product prescribing issue [Recovered/Resolved]
  - Product prescribing error [Recovered/Resolved]
